FAERS Safety Report 8835773 (Version 2)
Quarter: 2012Q4

REPORT INFORMATION
  Report Type: Report from Study
  Country: CA (occurrence: CA)
  Receive Date: 20121011
  Receipt Date: 20121019
  Transmission Date: 20130627
  Serious: Yes (Hospitalization)
  Sender: FDA-Public Use
  Company Number: CA-ABBOTT-12P-028-0992259-00

PATIENT
  Age: 33 None
  Sex: Female

DRUGS (1)
  1. HUMIRA [Suspect]
     Indication: CROHN^S DISEASE
     Route: 058
     Dates: start: 20110804, end: 20120925

REACTIONS (6)
  - Dyspepsia [Unknown]
  - Constipation [Unknown]
  - Mucous stools [Unknown]
  - Vomiting [Unknown]
  - Haematochezia [Unknown]
  - Crohn^s disease [Unknown]
